FAERS Safety Report 5429309-X (Version None)
Quarter: 2007Q3

REPORT INFORMATION
  Report Type: 
  Country: None (occurrence: None)
  Receive Date: 20070827
  Receipt Date: 20070827
  Transmission Date: 20080115
  Serious: Yes (Hospitalization)
  Sender: FDA-Public Use
  Company Number: None

PATIENT
  Sex: Male
  Weight: 58.2 kg

DRUGS (8)
  1. SUTENT [Suspect]
     Indication: METASTATIC RENAL CELL CARCINOMA
     Dosage: 50MG DAILY,2WKSON2WKOFF PO
     Route: 048
     Dates: start: 20070617, end: 20070730
  2. SUTENT [Suspect]
     Indication: METASTATIC RENAL CELL CARCINOMA
     Dosage: 50MG DAILY,2WKSON2WKOFF PO
     Route: 048
     Dates: start: 20070610
  3. LOPERAMIDE HCL [Concomitant]
  4. ZOFRAN [Concomitant]
  5. HYDROCHLOROTHIAZIDE [Concomitant]
  6. DULCOLAX [Concomitant]
  7. TRAMADOL HCL [Concomitant]
  8. MULTI-VITAMIN [Concomitant]

REACTIONS (4)
  - CARDIAC FAILURE CONGESTIVE [None]
  - CARDIOMYOPATHY [None]
  - DYSPNOEA [None]
  - ORTHOPNOEA [None]
